FAERS Safety Report 24833492 (Version 1)
Quarter: 2025Q1

REPORT INFORMATION
  Report Type: Spontaneous
  Country: US (occurrence: US)
  Receive Date: 20250112
  Receipt Date: 20250112
  Transmission Date: 20250409
  Serious: Yes (Hospitalization, Other)
  Sender: GLENMARK
  Company Number: US-GLENMARK PHARMACEUTICALS-2025GMK096989

PATIENT

DRUGS (1)
  1. SEVELAMER HYDROCHLORIDE [Suspect]
     Active Substance: SEVELAMER HYDROCHLORIDE
     Indication: Product used for unknown indication
     Route: 065

REACTIONS (4)
  - Terminal ileitis [Recovering/Resolving]
  - Iron deficiency anaemia [Recovering/Resolving]
  - Crystal deposit intestine [Recovering/Resolving]
  - Gastrointestinal injury [Recovering/Resolving]
